FAERS Safety Report 9752216 (Version 1)
Quarter: 2013Q4

REPORT INFORMATION
  Report Type: Spontaneous
  Country: US (occurrence: None)
  Receive Date: 20131212
  Receipt Date: 20131212
  Transmission Date: 20140711
  Serious: Yes (Disabling, Other)
  Sender: FDA-Public Use
  Company Number: None

PATIENT
  Age: 61 Year
  Sex: Female

DRUGS (13)
  1. LEVETIRACETAM 1,000 MG [Suspect]
     Indication: CONVULSION
     Dosage: 1,000 MG, 1/2 TAB, TWICE DAILY, BY MOUTH
     Route: 048
  2. LEVETIRACETAM 500MG [Concomitant]
  3. KLCONM 10 MEQ [Concomitant]
  4. CLONOPIN 1 MG [Concomitant]
  5. HYDROCOCODONE 7.5 MG [Concomitant]
  6. VIT D 1.25 MG [Concomitant]
  7. ASA 650 MG [Concomitant]
  8. THIAMINE [Concomitant]
  9. VIT C + E [Concomitant]
  10. CORRECTOL [Concomitant]
  11. VIT B. COMPLEX [Concomitant]
  12. GLIREOSAMINE CHONDROITIN [Concomitant]
  13. GARLIC [Concomitant]

REACTIONS (10)
  - Back pain [None]
  - Arthralgia [None]
  - Arthralgia [None]
  - Headache [None]
  - Muscle spasms [None]
  - Fatigue [None]
  - Insomnia [None]
  - Hypoaesthesia [None]
  - Paraesthesia [None]
  - Vision blurred [None]
